FAERS Safety Report 8062059-2 (Version None)
Quarter: 2012Q1

REPORT INFORMATION
  Report Type: 
  Country: None (occurrence: None)
  Receive Date: 20120123
  Receipt Date: 20120119
  Transmission Date: 20120608
  Serious: Yes (Other)
  Sender: FDA-Public Use
  Company Number: GB-AMGEN-GBRSP2012004089

PATIENT
  Sex: Male
  Weight: 110 kg

DRUGS (2)
  1. ANTINEOPLASTIC AGENTS [Concomitant]
     Indication: NEOPLASM MALIGNANT
  2. NEULASTA [Suspect]
     Indication: NEUTROPENIA
     Dosage: 6 MG, AFTER CHEMO
     Route: 058

REACTIONS (2)
  - FEBRILE NEUTROPENIA [None]
  - DRUG INEFFECTIVE [None]
